FAERS Safety Report 10874673 (Version 1)
Quarter: 2015Q1

REPORT INFORMATION
  Report Type: Report from Study
  Country: GB (occurrence: GB)
  Receive Date: 20150227
  Receipt Date: 20150227
  Transmission Date: 20150721
  Serious: Yes (Other)
  Sender: FDA-Public Use
  Company Number: GB-GLAXOSMITHKLINE INC.-GB2015GSK024022

PATIENT
  Sex: Female

DRUGS (1)
  1. DABRAFENIB [Suspect]
     Active Substance: DABRAFENIB
     Indication: PRODUCT USED FOR UNKNOWN INDICATION

REACTIONS (3)
  - Pulmonary fibrosis [Unknown]
  - Chest X-ray abnormal [Unknown]
  - Pneumonia [Unknown]
